FAERS Safety Report 24552969 (Version 1)
Quarter: 2024Q4

REPORT INFORMATION
  Report Type: Spontaneous
  Country: HR (occurrence: HR)
  Receive Date: 20241027
  Receipt Date: 20241027
  Transmission Date: 20250114
  Serious: Yes (Other)
  Sender: JOHNSON AND JOHNSON
  Company Number: HR-BAYER-2024A153085

PATIENT
  Age: 70 Year
  Sex: Female

DRUGS (6)
  1. XARELTO [Suspect]
     Active Substance: RIVAROXABAN
     Indication: Product used for unknown indication
     Dosage: 15 MG
     Route: 048
  2. EPLERENONE [Concomitant]
     Active Substance: EPLERENONE
     Dosage: 25 MG
  3. BISOPROLOL PFIZER [Concomitant]
     Dosage: 5 MG
  4. BISOPROLOL PFIZER [Concomitant]
     Dosage: 2.5 MG
     Dates: start: 202410
  5. DAPAGLIFLOZIN BIS L-PROLINE [Concomitant]
     Dosage: 10 MG
  6. FUROSEMIDE [Concomitant]
     Active Substance: FUROSEMIDE

REACTIONS (3)
  - Creatinine renal clearance decreased [Unknown]
  - N-terminal prohormone brain natriuretic peptide increased [Unknown]
  - Therapeutic response unexpected [Unknown]

NARRATIVE: CASE EVENT DATE: 20241001
